FAERS Safety Report 6229755-0 (Version None)
Quarter: 2009Q2

REPORT INFORMATION
  Report Type: 
  Country: None (occurrence: None)
  Receive Date: 20090615
  Receipt Date: 20090603
  Transmission Date: 20091009
  Serious: Yes (Hospitalization)
  Sender: FDA-Public Use
  Company Number: PHHY2009MX20971

PATIENT
  Sex: Female

DRUGS (2)
  1. DIOVAN HCT [Suspect]
     Indication: HYPERTENSION
     Dosage: 1 DF/DAY
     Route: 048
     Dates: start: 20070101, end: 20090110
  2. GLINORBORAL [Concomitant]
     Dosage: 2 TABLETS PER DAY
     Route: 048

REACTIONS (7)
  - CARDIAC OPERATION [None]
  - CEREBRAL THROMBOSIS [None]
  - HEMIPLEGIA [None]
  - HYSTERECTOMY [None]
  - LIMB DISCOMFORT [None]
  - UTERINE LEIOMYOMA [None]
  - VENOUS OCCLUSION [None]
